FAERS Safety Report 15265112 (Version 1)
Quarter: 2018Q3

REPORT INFORMATION
  Report Type: Spontaneous
  Country: IT (occurrence: IT)
  Receive Date: 20180810
  Receipt Date: 20180810
  Transmission Date: 20181010
  Serious: Yes (Hospitalization)
  Sender: FDA-Public Use
  Company Number: PHHY2018IT069451

PATIENT
  Age: 61 Year
  Sex: Female

DRUGS (3)
  1. AMOXICILLIN AND CLAVULANATE POTASSIUM [Suspect]
     Active Substance: AMOXICILLIN\CLAVULANATE POTASSIUM
     Indication: CYSTITIS
     Dosage: 1 DF, QD
     Route: 048
     Dates: start: 20171219
  2. AMOXICILLIN AND CLAVULANATE POTASSIUM [Suspect]
     Active Substance: AMOXICILLIN\CLAVULANATE POTASSIUM
     Dosage: 1 DF, QD
     Route: 048
     Dates: start: 20171220
  3. TIMOLABAK [Concomitant]
     Indication: PRODUCT USED FOR UNKNOWN INDICATION
     Dosage: UNK
     Route: 065

REACTIONS (5)
  - Presyncope [Recovering/Resolving]
  - Erythema [Recovering/Resolving]
  - Vomiting [Recovering/Resolving]
  - Rash generalised [Recovering/Resolving]
  - Pruritus generalised [Recovering/Resolving]

NARRATIVE: CASE EVENT DATE: 20171219
